FAERS Safety Report 8300230-2 (Version None)
Quarter: 2012Q2

REPORT INFORMATION
  Report Type: 
  Country: None (occurrence: None)
  Receive Date: 20120420
  Receipt Date: 20120416
  Transmission Date: 20120825
  Serious: Yes (Other)
  Sender: FDA-Public Use
  Company Number: BR-PFIZER INC-2012095879

PATIENT
  Sex: Female

DRUGS (1)
  1. LYRICA [Suspect]
     Indication: FIBROMYALGIA
     Dosage: 150 MG, UNSPECIFIED FREQUENCY
     Route: 048
     Dates: start: 20110416

REACTIONS (5)
  - PAIN [None]
  - OEDEMA PERIPHERAL [None]
  - LIGAMENT SPRAIN [None]
  - TENDON INJURY [None]
  - SKIN FISSURES [None]
